FAERS Safety Report 6306201-X (Version None)
Quarter: 2009Q3

REPORT INFORMATION
  Report Type: 
  Country: None (occurrence: None)
  Receive Date: 20090810
  Receipt Date: 20090810
  Transmission Date: 20100115
  Serious: Yes (Death)
  Sender: FDA-Public Use
  Company Number: None

PATIENT
  Sex: Male

DRUGS (5)
  1. REVLIMID [Suspect]
     Dosage: 5MG DAILY ORALLY
     Route: 048
     Dates: start: 20070912, end: 20071008
  2. ATRIPLA [Concomitant]
  3. OMEPRAZOLE [Concomitant]
  4. NORTRIPTYLINE HCL [Concomitant]
  5. PERCOCET [Concomitant]

REACTIONS (2)
  - DISEASE PROGRESSION [None]
  - PANCYTOPENIA [None]
